FAERS Safety Report 20610660 (Version 1)
Quarter: 2022Q1

REPORT INFORMATION
  Report Type: Other
  Country: AT (occurrence: None)
  Receive Date: 20220318
  Receipt Date: 20220318
  Transmission Date: 20220423
  Serious: Yes (Other)
  Sender: FDA-Public Use
  Company Number: AT-ROCHE-3046175

PATIENT

DRUGS (2)
  1. TOCILIZUMAB [Suspect]
     Active Substance: TOCILIZUMAB
     Indication: Polymyalgia rheumatica
     Route: 058
  2. PREDNISONE [Suspect]
     Active Substance: PREDNISONE
     Indication: Polymyalgia rheumatica
     Dosage: PRE-SPECIFIED TAPER REGIMEN WILL BE FOLLOWED OVER 11 WEEKS: WEEK 0: 20 MG WEEK 1: 17,5 MG WEEK 2: 15
     Route: 048

REACTIONS (1)
  - Retinal detachment [Unknown]
